FAERS Safety Report 10985017 (Version 2)
Quarter: 2015Q2

REPORT INFORMATION
  Report Type: Report from Study
  Country: BE (occurrence: BE)
  Receive Date: 20150403
  Receipt Date: 20150410
  Transmission Date: 20150821
  Serious: Yes (Life-Threatening, Hospitalization)
  Sender: FDA-Public Use
  Company Number: BE-ASTRAZENECA-2015SE31303

PATIENT
  Age: 16687 Day
  Sex: Female

DRUGS (20)
  1. AZD2281 [Suspect]
     Active Substance: OLAPARIB
     Indication: NEOPLASM
     Route: 048
     Dates: start: 20141218, end: 20150331
  2. TAMOXIFEN [Suspect]
     Active Substance: TAMOXIFEN
     Indication: NEOPLASM
     Route: 048
     Dates: start: 20141128, end: 20141217
  3. DEXAMETHASONE. [Concomitant]
     Active Substance: DEXAMETHASONE
     Indication: METASTASES TO CENTRAL NERVOUS SYSTEM
     Route: 048
     Dates: start: 20141129, end: 20141211
  4. AZD2281 [Suspect]
     Active Substance: OLAPARIB
     Indication: NEOPLASM
     Route: 048
     Dates: start: 20141119, end: 20141119
  5. DEXAMETHASONE. [Concomitant]
     Active Substance: DEXAMETHASONE
     Indication: METASTASES TO CENTRAL NERVOUS SYSTEM
     Dosage: 2 MG ON DAYS 1 AND 2, 1 MG ON DAY 3
     Route: 048
     Dates: start: 20150201, end: 20150210
  6. AZD2281 [Suspect]
     Active Substance: OLAPARIB
     Indication: NEOPLASM
     Route: 048
     Dates: start: 20141212, end: 20141217
  7. AZD2281 [Suspect]
     Active Substance: OLAPARIB
     Indication: NEOPLASM
     Route: 048
     Dates: start: 20150401, end: 20150401
  8. DEXAMETHASONE. [Concomitant]
     Active Substance: DEXAMETHASONE
     Indication: METASTASES TO CENTRAL NERVOUS SYSTEM
     Route: 048
     Dates: start: 20141030, end: 20141118
  9. AZD2281 [Suspect]
     Active Substance: OLAPARIB
     Indication: NEOPLASM
     Route: 048
     Dates: start: 20141113, end: 20141118
  10. BURINEX [Concomitant]
     Active Substance: BUMETANIDE
     Indication: GENERALISED OEDEMA
     Route: 048
     Dates: start: 20150113
  11. DEXAMETHASONE. [Concomitant]
     Active Substance: DEXAMETHASONE
     Indication: METASTASES TO CENTRAL NERVOUS SYSTEM
     Route: 048
     Dates: start: 20141119, end: 20141128
  12. DEXAMETHASONE. [Concomitant]
     Active Substance: DEXAMETHASONE
     Indication: METASTASES TO CENTRAL NERVOUS SYSTEM
     Dosage: 2 MG ON DAYS 1 AND 2, 1 MG ON DAY 3
     Route: 048
     Dates: start: 20150102, end: 20150113
  13. NUTRIONAL COMPLEMENT (VITAMIN C/MAGNESIUM) [Concomitant]
     Indication: MUSCLE SPASMS
     Dosage: 1 TABLET DAILY
     Route: 048
     Dates: start: 20141211, end: 20150315
  14. DAFALGAN [Concomitant]
     Active Substance: ACETAMINOPHEN
     Indication: MYALGIA
     Dosage: 500 MG PRN
     Route: 048
     Dates: start: 20141228
  15. DEXAMETHASONE. [Concomitant]
     Active Substance: DEXAMETHASONE
     Indication: METASTASES TO CENTRAL NERVOUS SYSTEM
     Route: 048
     Dates: start: 20141212, end: 20141217
  16. DEXAMETHASONE. [Concomitant]
     Active Substance: DEXAMETHASONE
     Indication: METASTASES TO CENTRAL NERVOUS SYSTEM
     Route: 048
     Dates: start: 20141218, end: 20150101
  17. DEXAMETHASONE. [Concomitant]
     Active Substance: DEXAMETHASONE
     Indication: METASTASES TO CENTRAL NERVOUS SYSTEM
     Dosage: 2 DAYS DAILY ON A 3 DAY BASIS
     Route: 048
     Dates: start: 20150211, end: 20150309
  18. DEXAMETHASONE. [Concomitant]
     Active Substance: DEXAMETHASONE
     Indication: METASTASES TO CENTRAL NERVOUS SYSTEM
     Dosage: EVERY THREE DAYS
     Route: 048
     Dates: start: 20150310
  19. TAMOXIFEN [Suspect]
     Active Substance: TAMOXIFEN
     Indication: NEOPLASM
     Route: 048
     Dates: start: 20141124, end: 20141127
  20. DEXAMETHASONE. [Concomitant]
     Active Substance: DEXAMETHASONE
     Indication: METASTASES TO CENTRAL NERVOUS SYSTEM
     Dosage: 2 MG ON DAYS 1 AND 2, 1 MG ON DAY 3
     Route: 048
     Dates: start: 20140114, end: 20150131

REACTIONS (1)
  - Anaemia [Not Recovered/Not Resolved]

NARRATIVE: CASE EVENT DATE: 20150401
